FAERS Safety Report 20389466 (Version 2)
Quarter: 2022Q1

REPORT INFORMATION
  Report Type: Spontaneous
  Country: RU (occurrence: RU)
  Receive Date: 20220128
  Receipt Date: 20220128
  Transmission Date: 20220423
  Serious: Yes (Other)
  Sender: FDA-Public Use
  Company Number: RU-UCBSA-2022003365

PATIENT
  Age: 28 Year
  Sex: Female

DRUGS (2)
  1. CETIRIZINE HYDROCHLORIDE [Suspect]
     Active Substance: CETIRIZINE HYDROCHLORIDE
     Indication: Urticaria
     Dosage: 10 MILLIGRAM, ONCE DAILY (QD)
     Route: 065
  2. CETIRIZINE HYDROCHLORIDE [Suspect]
     Active Substance: CETIRIZINE HYDROCHLORIDE
     Indication: Angioedema
     Route: 065

REACTIONS (5)
  - Foetal movement disorder [Recovered/Resolved]
  - Placental insufficiency [Recovered/Resolved]
  - Abdominal pain lower [Recovered/Resolved]
  - Maternal exposure before pregnancy [Unknown]
  - Product use in unapproved indication [Unknown]
